FAERS Safety Report 14706505 (Version 9)
Quarter: 2019Q4

REPORT INFORMATION
  Report Type: Spontaneous
  Country: US (occurrence: US)
  Receive Date: 20180402
  Receipt Date: 20191114
  Transmission Date: 20200122
  Serious: Yes (Hospitalization)
  Sender: FDA-Public Use
  Company Number: US-ACTELION-A-NJ2018-169856

PATIENT
  Age: 58 Year
  Sex: Male
  Weight: 113.38 kg

DRUGS (5)
  1. TRACLEER [Suspect]
     Active Substance: BOSENTAN
     Indication: PULMONARY HYPERTENSION
     Dosage: 125 MG, BID
     Route: 048
  2. WARFARIN [Concomitant]
     Active Substance: WARFARIN
  3. SILDENAFIL. [Concomitant]
     Active Substance: SILDENAFIL
  4. ADEMPAS [Concomitant]
     Active Substance: RIOCIGUAT
  5. REMODULIN [Concomitant]
     Active Substance: TREPROSTINIL
     Dosage: 60 NG/KG, PER MIN

REACTIONS (10)
  - Condition aggravated [Unknown]
  - Pneumonia [Unknown]
  - Fluid retention [Unknown]
  - Pulmonary arterial hypertension [Unknown]
  - Atrial fibrillation [Unknown]
  - Cardioversion [Unknown]
  - Cardiac failure acute [Unknown]
  - Angioplasty [Unknown]
  - Thrombectomy [Unknown]
  - Diagnostic procedure [Unknown]

NARRATIVE: CASE EVENT DATE: 20180312
